FAERS Safety Report 10341753 (Version 1)
Quarter: 2014Q3

REPORT INFORMATION
  Report Type: Spontaneous
  Country: US (occurrence: US)
  Receive Date: 20140725
  Receipt Date: 20140725
  Transmission Date: 20150326
  Serious: No
  Sender: FDA-Public Use
  Company Number: US-ASTRAZENECA-2014SE51493

PATIENT
  Age: 89 Year
  Sex: Male

DRUGS (2)
  1. PULMICORT RESPULES [Suspect]
     Active Substance: BUDESONIDE
     Dosage: 2 AMPULES DAILY
     Route: 055
     Dates: start: 2014
  2. PULMICORT RESPULES [Suspect]
     Active Substance: BUDESONIDE
     Dosage: 2 AMPULES DAILY
     Route: 055
     Dates: start: 2014, end: 2014

REACTIONS (3)
  - Malaise [Unknown]
  - Drug ineffective [Unknown]
  - Off label use [Unknown]

NARRATIVE: CASE EVENT DATE: 2014
